FAERS Safety Report 17510984 (Version 1)
Quarter: 2020Q1

REPORT INFORMATION
  Report Type: Spontaneous
  Country: US (occurrence: US)
  Receive Date: 20200306
  Receipt Date: 20200306
  Transmission Date: 20200409
  Serious: No
  Sender: FDA-Public Use
  Company Number: None

PATIENT
  Age: 38 Year
  Sex: Male

DRUGS (1)
  1. ENTYVIO [Suspect]
     Active Substance: VEDOLIZUMAB

REACTIONS (4)
  - Pharyngeal paraesthesia [None]
  - Palpitations [None]
  - Infusion related reaction [None]
  - Paraesthesia [None]

NARRATIVE: CASE EVENT DATE: 20200306
